FAERS Safety Report 6401236-0 (Version None)
Quarter: 2009Q4

REPORT INFORMATION
  Report Type: 
  Country: None (occurrence: None)
  Receive Date: 20091009
  Receipt Date: 20091009
  Transmission Date: 20100525
  Serious: Yes (Hospitalization, Other)
  Sender: FDA-Public Use
  Company Number: None

PATIENT
  Sex: Male
  Weight: 3.645 kg

DRUGS (2)
  1. GENTAK [Suspect]
     Indication: INCLUSION CONJUNCTIVITIS NEONATAL
     Dosage: 1/2^ RIBBON ONE TIME ONLY OPHTHALMIC
     Route: 047
     Dates: start: 20091004, end: 20091004
  2. GENTAK [Suspect]
     Indication: PROPHYLAXIS
     Dosage: 1/2^ RIBBON ONE TIME ONLY OPHTHALMIC
     Route: 047
     Dates: start: 20091004, end: 20091004

REACTIONS (4)
  - EYELID MARGIN CRUSTING [None]
  - EYELID OEDEMA [None]
  - OCULAR HYPERAEMIA [None]
  - SKIN DISCOLOURATION [None]
